FAERS Safety Report 13151820 (Version 1)
Quarter: 2017Q1

REPORT INFORMATION
  Report Type: Spontaneous
  Country: FR (occurrence: FR)
  Receive Date: 20170125
  Receipt Date: 20170125
  Transmission Date: 20170428
  Serious: Yes (Death, Hospitalization, Other)
  Sender: FDA-Public Use
  Company Number: FR-BRISTOL-MYERS SQUIBB COMPANY-BMS-2017-004081

PATIENT
  Age: 58 Year
  Sex: Male

DRUGS (1)
  1. ELIQUIS [Suspect]
     Active Substance: APIXABAN
     Indication: PULMONARY EMBOLISM
     Dosage: 5 MG, BID
     Route: 048
     Dates: start: 20161230, end: 20170107

REACTIONS (11)
  - Ischaemic stroke [Unknown]
  - Adrenal haematoma [Unknown]
  - Abdominal wall haematoma [Unknown]
  - Meningorrhagia [Unknown]
  - Cor pulmonale acute [Fatal]
  - Cerebral haemorrhage [Fatal]
  - Cephalhaematoma [Not Recovered/Not Resolved]
  - Drug ineffective [Fatal]
  - Off label use [Unknown]
  - Phlebitis [Unknown]
  - Pulmonary embolism [Fatal]

NARRATIVE: CASE EVENT DATE: 20170107
